FAERS Safety Report 6055463-5 (Version None)
Quarter: 2009Q1

REPORT INFORMATION
  Report Type: 
  Country: None (occurrence: None)
  Receive Date: 20090128
  Receipt Date: 20090122
  Transmission Date: 20090719
  Serious: Yes (Hospitalization)
  Sender: FDA-Public Use
  Company Number: US-ASTRAZENECA-2009UW02219

PATIENT
  Age: 71 Year
  Sex: Male

DRUGS (11)
  1. CASODEX [Suspect]
     Indication: PROSTATE CANCER
     Route: 048
     Dates: start: 20080929
  2. LUPRON [Suspect]
     Route: 030
     Dates: start: 20081001
  3. DOCETAXEL [Suspect]
     Indication: PROSTATE CANCER
     Dosage: 60 MG/M2 EVERY THREE WEEKS X THREE CYCLES, 20 MG/M2 WEEKLY WITH RADIATION THERAPY
     Route: 042
     Dates: start: 20081001
  4. SIMVASTATIN [Concomitant]
  5. CARVEDILOL [Concomitant]
  6. COLACE [Concomitant]
  7. OMEPRAZOLE [Concomitant]
  8. DIGOXIN [Concomitant]
  9. LOPERAMIDE HCL [Concomitant]
  10. BENAZEPRIL KCL [Concomitant]
  11. ASPIRIN [Concomitant]

REACTIONS (6)
  - BACTERAEMIA [None]
  - DEHYDRATION [None]
  - HAEMATOCRIT DECREASED [None]
  - HAEMOGLOBIN DECREASED [None]
  - HYPOTENSION [None]
  - URINARY TRACT INFECTION [None]
